FAERS Safety Report 15000229 (Version 3)
Quarter: 2018Q3

REPORT INFORMATION
  Report Type: Spontaneous
  Country: JP (occurrence: JP)
  Receive Date: 20180612
  Receipt Date: 20180709
  Transmission Date: 20181010
  Serious: Yes (Hospitalization, Other)
  Sender: FDA-Public Use
  Company Number: JP-GLAXOSMITHKLINE-JP2018JPN102069

PATIENT
  Age: 75 Year
  Sex: Male

DRUGS (5)
  1. CHINESE MEDICINE [Concomitant]
     Active Substance: UNSPECIFIED INGREDIENT
     Dosage: UNK
     Route: 048
     Dates: end: 20180606
  2. VALTREX [Suspect]
     Active Substance: VALACYCLOVIR HYDROCHLORIDE
     Indication: HERPES ZOSTER
     Dosage: 3000 MG, 1D
     Route: 048
     Dates: start: 20180529, end: 20180604
  3. METHYCOBAL [Concomitant]
     Active Substance: METHYLCOBALAMIN
     Dosage: UNK
     Route: 048
     Dates: end: 20180606
  4. NEUROTROPIN (JAPAN) [Concomitant]
     Dosage: UNK
     Route: 048
     Dates: end: 20180606
  5. LYRICA [Concomitant]
     Active Substance: PREGABALIN
     Dosage: 4 UNK, UNK
     Route: 048
     Dates: end: 20180606

REACTIONS (2)
  - Restlessness [Recovering/Resolving]
  - Altered state of consciousness [Recovered/Resolved]

NARRATIVE: CASE EVENT DATE: 20180606
